FAERS Safety Report 8202806-X (Version None)
Quarter: 2012Q1

REPORT INFORMATION
  Report Type: 
  Country: None (occurrence: None)
  Receive Date: 20120312
  Receipt Date: 20120312
  Transmission Date: 20120608
  Serious: Yes (Disabling, Other)
  Sender: FDA-Public Use
  Company Number: None

PATIENT
  Age: 23 Year
  Sex: Male

DRUGS (2)
  1. SEROQUEL XR [Suspect]
     Indication: SCHIZOAFFECTIVE DISORDER
     Dosage: SEROQUEL XR 200 MG
     Route: 048
     Dates: start: 20110501, end: 20120309
  2. SEROQUEL XR [Concomitant]
     Dosage: SEROQUEL XR 400 MG
     Route: 048

REACTIONS (1)
  - NEUTROPHIL COUNT INCREASED [None]
